FAERS Safety Report 8213593-3 (Version None)
Quarter: 2012Q1

REPORT INFORMATION
  Report Type: 
  Country: None (occurrence: None)
  Receive Date: 20120315
  Receipt Date: 20120307
  Transmission Date: 20120608
  Serious: Yes (Hospitalization)
  Sender: FDA-Public Use
  Company Number: DK-ASTRAZENECA-2012SE15909

PATIENT
  Age: 74 Year
  Sex: Male

DRUGS (2)
  1. BRILIQUE [Suspect]
     Route: 048
     Dates: start: 20111229, end: 20120119
  2. CLOPIDOGREL (PLAVIX) [Suspect]
     Route: 065
     Dates: start: 20120119, end: 20120208

REACTIONS (4)
  - HAEMORRHAGE SUBCUTANEOUS [None]
  - PRURITUS GENERALISED [None]
  - RASH GENERALISED [None]
  - DERMATITIS [None]
